FAERS Safety Report 5940085-4 (Version None)
Quarter: 2008Q4

REPORT INFORMATION
  Report Type: 
  Country: None (occurrence: None)
  Receive Date: 20081104
  Receipt Date: 20081029
  Transmission Date: 20090506
  Serious: Yes (Disabling, Other)
  Sender: FDA-Public Use
  Company Number: PHHY2008ES25668

PATIENT
  Age: 75 Year
  Sex: Male

DRUGS (3)
  1. ZOMETA [Suspect]
     Indication: METASTASES TO BONE
     Dosage: 4 MG, QMO
     Route: 042
     Dates: start: 20060224, end: 20080227
  2. TAXOTERE [Concomitant]
     Route: 042
  3. METHYLPREDNISOLONE 16MG TAB [Concomitant]
     Dosage: 20 MG/DAY

REACTIONS (2)
  - OSTEONECROSIS [None]
  - PAIN IN JAW [None]
